FAERS Safety Report 7887658-X (Version None)
Quarter: 2011Q4

REPORT INFORMATION
  Report Type: 
  Country: None (occurrence: None)
  Receive Date: 20111103
  Receipt Date: 20111026
  Transmission Date: 20120403
  Serious: No
  Sender: FDA-Public Use
  Company Number: US-BIOGENIDEC-2011BI041205

PATIENT
  Age: 40 Year
  Sex: Female

DRUGS (2)
  1. BENADRYL [Concomitant]
     Indication: PREMEDICATION
  2. TYSABRI [Suspect]
     Indication: MULTIPLE SCLEROSIS
     Route: 042
     Dates: start: 20100809

REACTIONS (9)
  - ORAL HERPES [None]
  - INSOMNIA [None]
  - CONFUSIONAL STATE [None]
  - STRESS [None]
  - HERPES VIRUS INFECTION [None]
  - ANXIETY [None]
  - FATIGUE [None]
  - DYSPNOEA [None]
  - MEMORY IMPAIRMENT [None]
